FAERS Safety Report 4314926-0 (Version None)
Quarter: 2004Q1

REPORT INFORMATION
  Report Type: 
  Country: None (occurrence: None)
  Receive Date: 20040310
  Receipt Date: 20031218
  Transmission Date: 20041129
  Serious: Yes (Life-Threatening, Hospitalization, Other)
  Sender: FDA-Public Use
  Company Number: WAES 0312USA02218

PATIENT
  Age: 54 Year
  Sex: Male

DRUGS (21)
  1. TAGAMET [Concomitant]
     Route: 042
     Dates: start: 20031023, end: 20031208
  2. BRIPLATIN [Concomitant]
     Indication: OESOPHAGEAL CARCINOMA
     Route: 042
     Dates: start: 20031020, end: 20031107
  3. PEPCID [Suspect]
     Indication: PROPHYLAXIS
     Route: 042
     Dates: start: 20031209, end: 20031218
  4. FLUOROURACIL [Concomitant]
     Indication: OESOPHAGEAL CARCINOMA
     Route: 042
  5. FOY [Concomitant]
     Indication: SURGERY
     Route: 042
     Dates: start: 20031209, end: 20031211
  6. HETASTARCH [Concomitant]
     Indication: SURGERY
     Route: 042
     Dates: start: 20031209
  7. MANNITOL [Concomitant]
     Route: 041
     Dates: start: 20031209, end: 20031210
  8. CARBOCAIN [Concomitant]
     Indication: ANALGESIC EFFECT
     Dates: start: 20031209, end: 20031212
  9. DORMICUM (MIDAZOLAM) [Concomitant]
     Indication: SURGERY
     Route: 042
     Dates: start: 20031209
  10. NUTRITIONAL SUPPLEMENTS [Concomitant]
     Route: 042
     Dates: start: 20031023, end: 20031208
  11. NUTRITIONAL SUPPLEMENTS [Concomitant]
     Route: 042
     Dates: start: 20031213, end: 20031218
  12. PENTCILLIN [Concomitant]
     Indication: INFECTION PROPHYLAXIS
     Route: 042
     Dates: start: 20031217, end: 20031218
  13. PLASMANATE [Concomitant]
     Indication: FLUID REPLACEMENT
     Route: 042
     Dates: start: 20031209, end: 20031211
  14. MIRACLID [Concomitant]
     Indication: SURGERY
     Dates: start: 20031209, end: 20031209
  15. [THERAPY UNSPECIFIED] [Concomitant]
     Indication: SURGERY
     Route: 042
     Dates: start: 20031209
  16. [THERAPY UNSPECIFIED] [Concomitant]
     Indication: POLYURIA
     Route: 042
     Dates: start: 20031209, end: 20031212
  17. [THERAPY UNSPECIFIED] [Concomitant]
     Route: 041
     Dates: start: 20031209, end: 20031210
  18. ADENINE [Concomitant]
     Route: 041
     Dates: start: 20031209, end: 20031210
  19. ALBUMINAR [Concomitant]
     Indication: SURGERY
     Route: 042
     Dates: start: 20031209
  20. ATROPINE SULFATE [Concomitant]
     Indication: SURGERY
     Route: 042
     Dates: start: 20031209
  21. CEFMETAZON [Concomitant]
     Indication: SURGERY
     Route: 042
     Dates: start: 20031209, end: 20031211

REACTIONS (3)
  - HEPATOCELLULAR DAMAGE [None]
  - POST PROCEDURAL COMPLICATION [None]
  - SUTURE RUPTURE [None]
